FAERS Safety Report 6002546-1 (Version None)
Quarter: 2008Q4

REPORT INFORMATION
  Report Type: 
  Country: None (occurrence: None)
  Receive Date: 20081215
  Receipt Date: 20071126
  Transmission Date: 20090506
  Serious: No
  Sender: FDA-Public Use
  Company Number: US-AMGEN-KDL254137

PATIENT
  Sex: Female

DRUGS (2)
  1. ENBREL [Suspect]
     Indication: RHEUMATOID ARTHRITIS
     Route: 058
     Dates: start: 20030701
  2. ARAVA [Concomitant]

REACTIONS (5)
  - CELLULITIS [None]
  - GLOSSODYNIA [None]
  - ORAL INFECTION [None]
  - STAPHYLOCOCCAL INFECTION [None]
  - TONGUE DISCOLOURATION [None]
